FAERS Safety Report 5149135-9 (Version None)
Quarter: 2006Q4

REPORT INFORMATION
  Report Type: 
  Country: None (occurrence: None)
  Receive Date: 20061113
  Receipt Date: 20060809
  Transmission Date: 20070319
  Serious: No
  Sender: FDA-Public Use
  Company Number: US-GLAXOSMITHKLINE-A0616014A

PATIENT
  Age: 84 Year
  Sex: Female

DRUGS (4)
  1. COREG [Suspect]
     Dosage: 25MG PER DAY
     Route: 048
  2. LASIX [Concomitant]
  3. DIGITEK [Concomitant]
  4. POTASSIUM ACETATE [Concomitant]

REACTIONS (1)
  - DRY MOUTH [None]
